FAERS Safety Report 4795696-9 (Version None)
Quarter: 2005Q3

REPORT INFORMATION
  Report Type: 
  Country: None (occurrence: None)
  Receive Date: 20050916
  Receipt Date: 20050613
  Transmission Date: 20060218
  Serious: Yes (Other)
  Sender: FDA-Public Use
  Company Number: US-JNJFOC-20050603905

PATIENT
  Age: 4 Year
  Sex: Female
  Weight: 16.1 kg

DRUGS (2)
  1. TOPAMAX [Suspect]
     Indication: EPILEPSY
     Dosage: 125 MG, IN 1 DAY, ORAL
     Route: 048
     Dates: start: 20050504
  2. LAMICTAL [Concomitant]

REACTIONS (1)
  - CONVULSION [None]
